FAERS Safety Report 5132892-5 (Version None)
Quarter: 2006Q4

REPORT INFORMATION
  Report Type: 
  Country: None (occurrence: None)
  Receive Date: 20061023
  Receipt Date: 20061010
  Transmission Date: 20070319
  Serious: Yes (Hospitalization, Other)
  Sender: FDA-Public Use
  Company Number: BE-AVENTIS-200620744GDDC

PATIENT
  Age: 62 Year
  Sex: Female

DRUGS (1)
  1. ARAVA [Suspect]
     Indication: PSORIATIC ARTHROPATHY
     Route: 048
     Dates: start: 20060601, end: 20060901

REACTIONS (10)
  - ANAEMIA [None]
  - BLOOD ALBUMIN DECREASED [None]
  - CEREBRAL ARTERY EMBOLISM [None]
  - DEPRESSED LEVEL OF CONSCIOUSNESS [None]
  - DIARRHOEA [None]
  - GASTROINTESTINAL PAIN [None]
  - HAEMOLYTIC URAEMIC SYNDROME [None]
  - PLATELET COUNT DECREASED [None]
  - RENAL FAILURE [None]
  - WEIGHT DECREASED [None]
